FAERS Safety Report 5357118-9 (Version None)
Quarter: 2007Q2

REPORT INFORMATION
  Report Type: 
  Country: None (occurrence: None)
  Receive Date: 20070614
  Receipt Date: 20070501
  Transmission Date: 20071010
  Serious: Yes (Hospitalization)
  Sender: FDA-Public Use
  Company Number: US-BRISTOL-MYERS SQUIBB COMPANY-13766357

PATIENT
  Age: 86 Year
  Sex: Male

DRUGS (2)
  1. ABILIFY [Suspect]
     Route: 030
  2. ABILIFY [Suspect]
     Route: 048

REACTIONS (4)
  - ATRIAL FIBRILLATION [None]
  - BRADYCARDIA [None]
  - NAUSEA [None]
  - VOMITING [None]
